FAERS Safety Report 4600647-3 (Version None)
Quarter: 2005Q1

REPORT INFORMATION
  Report Type: 
  Country: None (occurrence: None)
  Receive Date: 20050304
  Receipt Date: 20050216
  Transmission Date: 20050727
  Serious: Yes (Hospitalization)
  Sender: FDA-Public Use
  Company Number: 2005-BP-01531NB

PATIENT
  Age: 87 Year
  Sex: Male

DRUGS (3)
  1. PERSANTIN [Suspect]
     Indication: MYOCARDIAL ISCHAEMIA
     Dosage: PO
     Route: 048
     Dates: end: 19971129
  2. UNKNOWN DRUG (UNK) [Suspect]
     Indication: PAIN IN EXTREMITY
     Dates: end: 19971129
  3. MEXILETINE HYDROCHLORIDE (MEXILETINE HYDROCHLORIDE) (KA) [Concomitant]

REACTIONS (1)
  - DIVERTICULITIS INTESTINAL HAEMORRHAGIC [None]
